FAERS Safety Report 4464745-X (Version None)
Quarter: 2004Q4

REPORT INFORMATION
  Report Type: 
  Country: None (occurrence: None)
  Receive Date: 20041004
  Receipt Date: 20040712
  Transmission Date: 20050328
  Serious: No
  Sender: FDA-Public Use
  Company Number: 377674

PATIENT
  Age: 40 Year
  Sex: Female

DRUGS (2)
  1. COREG [Suspect]
     Indication: HEART RATE INCREASED
     Dosage: 6.25MG PER DAY
     Route: 048
     Dates: start: 20040428
  2. NO CONCURRENT MEDICATION [Concomitant]

REACTIONS (2)
  - HEART RATE INCREASED [None]
  - PHARMACEUTICAL PRODUCT COMPLAINT [None]
